FAERS Safety Report 4632846-9 (Version None)
Quarter: 2005Q2

REPORT INFORMATION
  Report Type: 
  Country: None (occurrence: None)
  Receive Date: 20050412
  Receipt Date: 20050309
  Transmission Date: 20051028
  Serious: Yes (Death, Other)
  Sender: FDA-Public Use
  Company Number: PHNR2005AU00622

PATIENT
  Age: 42 Year
  Sex: Male

DRUGS (10)
  1. CASPOFUNGIN [Suspect]
     Indication: FUNGAL INFECTION
     Dosage: 50 MG, QD
     Dates: start: 20050126, end: 20050203
  2. CASPOFUNGIN [Suspect]
     Dosage: 35 MG, QD
     Dates: start: 20050204
  3. GLEEVEC [Suspect]
     Indication: ACUTE LYMPHOCYTIC LEUKAEMIA RECURRENT
     Dosage: 600 MG, QD
     Route: 048
     Dates: start: 20041220, end: 20050202
  4. ACYCLOVIR [Concomitant]
  5. MEROPENEM [Concomitant]
  6. LORAZEPAM [Concomitant]
  7. OMEPRAZOLE [Concomitant]
  8. CHLORVESCENT [Concomitant]
  9. VANCOMYCIN [Concomitant]
  10. TPN [Concomitant]

REACTIONS (5)
  - ARTERIAL RUPTURE [None]
  - DRUG INTERACTION [None]
  - FUNGAL INFECTION [None]
  - HYPERBILIRUBINAEMIA [None]
  - LIVER FUNCTION TEST ABNORMAL [None]
